FAERS Safety Report 12256139 (Version 1)
Quarter: 2016Q2

REPORT INFORMATION
  Report Type: Spontaneous
  Country: None (occurrence: None)
  Receive Date: 20160411
  Receipt Date: 20160411
  Transmission Date: 20160815
  Serious: No
  Sender: FDA-Public Use
  Company Number: None

PATIENT
  Age: 48 Year
  Sex: Male

DRUGS (1)
  1. CAPECITABINE TAB 500MG [Suspect]
     Active Substance: CAPECITABINE
     Indication: COLORECTAL CANCER
     Dosage: 500MG  3 BID  ONE WE ORAL
     Route: 048
     Dates: start: 20160101

REACTIONS (1)
  - Fatigue [None]

NARRATIVE: CASE EVENT DATE: 20160408
